FAERS Safety Report 12164320 (Version 1)
Quarter: 2016Q1

REPORT INFORMATION
  Report Type: Spontaneous
  Country: US (occurrence: US)
  Receive Date: 20160309
  Receipt Date: 20160309
  Transmission Date: 20160526
  Serious: No
  Sender: FDA-Public Use
  Company Number: US-ROCHE-1644530

PATIENT
  Age: 46 Year
  Sex: Female

DRUGS (2)
  1. XOLAIR [Suspect]
     Active Substance: OMALIZUMAB
     Indication: ASTHMA
     Dosage: 1 INJECTION MONTHLY
     Route: 058
     Dates: start: 20150326
  2. XOLAIR [Suspect]
     Active Substance: OMALIZUMAB
     Dosage: 1 SYRINGE
     Route: 058
     Dates: start: 20150115

REACTIONS (2)
  - Blood immunoglobulin E increased [Unknown]
  - Blood creatinine increased [Unknown]

NARRATIVE: CASE EVENT DATE: 20150929
